FAERS Safety Report 9206724 (Version 1)
Quarter: 2013Q1

REPORT INFORMATION
  Report Type: Spontaneous
  Country: US (occurrence: None)
  Receive Date: 20120731
  Receipt Date: 20120731
  Transmission Date: 20140127
  Serious: Yes (Hospitalization)
  Sender: FDA-Public Use
  Company Number: AMAG201203025

PATIENT
  Age: 48 Year
  Sex: Female
  Weight: 97.1 kg

DRUGS (6)
  1. FERAHEME (FERUMOXYTOL) INJECTION, 510MG [Suspect]
     Indication: IRON DEFICIENCY ANAEMIA
     Dosage: SINGLE?
     Route: 042
     Dates: start: 20120427, end: 20120427
  2. XANAX (ALPRAZOLAM) [Concomitant]
  3. SYNTHROID (LEVOTHYROXINE SODIUM) [Concomitant]
  4. LISINOPRIL (LISINOPRIL) [Concomitant]
  5. METFORMIN (METFORMIN) [Concomitant]
  6. TRAZODONE (TRAZODONE) [Concomitant]

REACTIONS (11)
  - Anaphylactic reaction [None]
  - Dyspnoea [None]
  - Throat tightness [None]
  - Oxygen saturation decreased [None]
  - Flushing [None]
  - Swelling face [None]
  - Generalised erythema [None]
  - Hyperhidrosis [None]
  - Eye pruritus [None]
  - Urticaria [None]
  - Dizziness [None]
